FAERS Safety Report 21211460 (Version 1)
Quarter: 2022Q3

REPORT INFORMATION
  Report Type: Spontaneous
  Country: JP (occurrence: JP)
  Receive Date: 20220815
  Receipt Date: 20220815
  Transmission Date: 20221026
  Serious: Yes (Other)
  Sender: FDA-Public Use
  Company Number: JP-BAYER-2022A107327

PATIENT
  Sex: Female

DRUGS (1)
  1. YAZ [Suspect]
     Active Substance: DROSPIRENONE\ETHINYL ESTRADIOL
     Indication: Polycystic ovaries
     Route: 048

REACTIONS (4)
  - Hemihypoaesthesia [None]
  - Intermenstrual bleeding [None]
  - Vision blurred [None]
  - Off label use [None]

NARRATIVE: CASE EVENT DATE: 20220707
